FAERS Safety Report 5749166-1 (Version None)
Quarter: 2008Q2

REPORT INFORMATION
  Report Type: 
  Country: None (occurrence: None)
  Receive Date: 20080527
  Receipt Date: 20080514
  Transmission Date: 20081010
  Serious: Yes (Hospitalization)
  Sender: FDA-Public Use
  Company Number: JP-NOVOPROD-275353

PATIENT
  Sex: Male

DRUGS (3)
  1. LEVEMIR [Suspect]
     Indication: BLOOD GLUCOSE ABNORMAL
     Route: 058
     Dates: start: 20080301
  2. NOVORAPID 30 MIX CHU [Suspect]
     Indication: BLOOD GLUCOSE ABNORMAL
     Route: 058
     Dates: start: 20080301
  3. ARTIST [Concomitant]
     Route: 048

REACTIONS (1)
  - ANGINA UNSTABLE [None]
